FAERS Safety Report 7965511-0 (Version None)
Quarter: 2011Q4

REPORT INFORMATION
  Report Type: 
  Country: None (occurrence: None)
  Receive Date: 20111208
  Receipt Date: 20111205
  Transmission Date: 20120403
  Serious: No
  Sender: FDA-Public Use
  Company Number: US-BAYER-2011-117421

PATIENT
  Sex: Female

DRUGS (2)
  1. CLIMARA [Suspect]
     Dosage: UNK
     Dates: start: 20110601
  2. CLIMARA [Suspect]
     Dosage: 0.1 MG, UNK
     Dates: start: 20110101

REACTIONS (3)
  - ABDOMINAL DISTENSION [None]
  - PAIN IN EXTREMITY [None]
  - HOT FLUSH [None]
